FAERS Safety Report 16400593 (Version 2)
Quarter: 2019Q2

REPORT INFORMATION
  Report Type: Report from Study
  Country: DE (occurrence: DE)
  Receive Date: 20190606
  Receipt Date: 20190613
  Transmission Date: 20190711
  Serious: Yes (Other)
  Sender: FDA-Public Use
  Company Number: DE-JNJFOC-20190538600

PATIENT

DRUGS (6)
  1. DOXORUBICIN HYDROCHLORIDE. [Suspect]
     Active Substance: DOXORUBICIN HYDROCHLORIDE
     Indication: RHABDOMYOSARCOMA
     Route: 065
  2. ACTINOMYCIN D [Suspect]
     Active Substance: DACTINOMYCIN
     Indication: RHABDOMYOSARCOMA
     Route: 065
  3. IFOSFAMIDE. [Suspect]
     Active Substance: IFOSFAMIDE
     Indication: RHABDOMYOSARCOMA
     Route: 065
  4. ETOPOSIDE. [Suspect]
     Active Substance: ETOPOSIDE
     Indication: RHABDOMYOSARCOMA
     Route: 065
  5. CYCLOPHOSPHAMIDE. [Suspect]
     Active Substance: CYCLOPHOSPHAMIDE
     Indication: RHABDOMYOSARCOMA
     Route: 048
  6. VINCRISTINE [Suspect]
     Active Substance: VINCRISTINE
     Indication: RHABDOMYOSARCOMA
     Route: 065

REACTIONS (16)
  - Neuropathy peripheral [Unknown]
  - Toxicity to various agents [Unknown]
  - Urogenital disorder [Unknown]
  - Neuroblastoma [Unknown]
  - Growth retardation [Unknown]
  - Osteosarcoma [Unknown]
  - Off label use [Unknown]
  - Amputation [Unknown]
  - Pancreatic neuroendocrine tumour [Unknown]
  - Ewing^s sarcoma [Unknown]
  - Neoplasm [Unknown]
  - Astrocytoma [Unknown]
  - Product use in unapproved indication [Unknown]
  - Nephropathy toxic [Unknown]
  - Restrictive cardiomyopathy [Unknown]
  - Scoliosis [Unknown]
